FAERS Safety Report 9551741 (Version 2)
Quarter: 2013Q4

REPORT INFORMATION
  Report Type: Spontaneous
  Country: US (occurrence: US)
  Receive Date: 20130925
  Receipt Date: 20131122
  Transmission Date: 20140711
  Serious: Yes (Other)
  Sender: FDA-Public Use
  Company Number: US-BAYER-2013-115597

PATIENT
  Age: 31 Year
  Sex: Female
  Weight: 68 kg

DRUGS (1)
  1. MIRENA [Suspect]
     Dosage: 20 MCG/24HR, CONT
     Route: 015
     Dates: start: 2011, end: 20130921

REACTIONS (5)
  - Drug ineffective [None]
  - Pregnancy with contraceptive device [Recovered/Resolved]
  - Amenorrhoea [None]
  - Vaginal haemorrhage [None]
  - Abortion spontaneous [None]
